FAERS Safety Report 18305264 (Version 2)
Quarter: 2020Q3

REPORT INFORMATION
  Report Type: Spontaneous
  Country: JP (occurrence: JP)
  Receive Date: 20200924
  Receipt Date: 20200929
  Transmission Date: 20201103
  Serious: Yes (Hospitalization, Other)
  Sender: FDA-Public Use
  Company Number: JP-GLAXOSMITHKLINE-JP2020187511

PATIENT
  Age: 80 Year
  Sex: Female

DRUGS (1)
  1. AVOLVE [Suspect]
     Active Substance: DUTASTERIDE
     Dosage: 1 DF
     Route: 048

REACTIONS (3)
  - Loss of consciousness [Recovering/Resolving]
  - Wrong patient received product [Recovered/Resolved]
  - Contraindicated product administered [Unknown]
